FAERS Safety Report 9804583 (Version 1)
Quarter: 2014Q1

REPORT INFORMATION
  Report Type: Spontaneous
  Country: GB (occurrence: GB)
  Receive Date: 20140108
  Receipt Date: 20140108
  Transmission Date: 20141002
  Serious: Yes (Hospitalization)
  Sender: FDA-Public Use
  Company Number: GB-B.I. PHARMACEUTICALS,INC./RIDGEFIELD-2014-BI-00683UK

PATIENT
  Age: 77 Year
  Sex: Female
  Weight: 77 kg

DRUGS (7)
  1. PRADAXA [Suspect]
     Indication: ATRIAL FIBRILLATION
     Dosage: 300 MG
     Route: 048
     Dates: end: 20131203
  2. BISOPROLOL [Concomitant]
     Dosage: 10 MG
  3. DIGOXIN [Concomitant]
  4. GTN [Concomitant]
  5. OMEPRAZOLE [Concomitant]
     Dosage: 20 MG
  6. PREDNISOLONE [Concomitant]
     Dosage: 2.5 MG
  7. TROSPIUM [Concomitant]
     Dosage: 1 ANZ

REACTIONS (1)
  - Hepatitis acute [Recovered/Resolved]
